FAERS Safety Report 17300123 (Version 1)
Quarter: 2020Q1

REPORT INFORMATION
  Report Type: Spontaneous
  Country: US (occurrence: US)
  Receive Date: 20200122
  Receipt Date: 20200122
  Transmission Date: 20200409
  Serious: No
  Sender: FDA-Public Use
  Company Number: US-ALLERGAN-1917097US

PATIENT
  Age: 4 Year
  Sex: Female

DRUGS (6)
  1. RESTASIS [Suspect]
     Active Substance: CYCLOSPORINE
     Indication: DRY EYE
  2. REPLENISH [Concomitant]
     Indication: DRY EYE
     Dosage: UNK, PRN
     Route: 047
  3. REPLENISH [Concomitant]
     Indication: PUNCTATE KERATITIS
  4. ALREX [Concomitant]
     Active Substance: LOTEPREDNOL ETABONATE
     Indication: PUNCTATE KERATITIS
     Dosage: UNK, PRN
     Route: 047
  5. ALREX [Concomitant]
     Active Substance: LOTEPREDNOL ETABONATE
     Indication: ARTHRITIS
  6. RESTASIS [Suspect]
     Active Substance: CYCLOSPORINE
     Indication: PUNCTATE KERATITIS
     Dosage: UNK, QD (2-3 DROPS)
     Route: 047
     Dates: start: 201901, end: 201902

REACTIONS (5)
  - Product dose omission [Unknown]
  - Off label use [Unknown]
  - Drug ineffective for unapproved indication [Unknown]
  - Incorrect dose administered [Unknown]
  - Drug ineffective [Unknown]

NARRATIVE: CASE EVENT DATE: 201901
